FAERS Safety Report 24613458 (Version 1)
Quarter: 2024Q4

REPORT INFORMATION
  Report Type: Spontaneous
  Country: US (occurrence: US)
  Receive Date: 20241113
  Receipt Date: 20241113
  Transmission Date: 20250115
  Serious: Yes (Hospitalization)
  Sender: ELI LILLY AND COMPANY
  Company Number: US-ELI_LILLY_AND_COMPANY-US202411000982

PATIENT
  Age: 78 Year
  Sex: Female

DRUGS (8)
  1. MOUNJARO [Suspect]
     Active Substance: TIRZEPATIDE
     Indication: Type 2 diabetes mellitus
     Dosage: 2.5 MG, UNKNOWN
     Route: 058
     Dates: start: 2023
  2. MOUNJARO [Suspect]
     Active Substance: TIRZEPATIDE
     Indication: Type 2 diabetes mellitus
     Dosage: 2.5 MG, UNKNOWN
     Route: 058
     Dates: start: 2023
  3. MOUNJARO [Suspect]
     Active Substance: TIRZEPATIDE
     Indication: Type 2 diabetes mellitus
     Dosage: 2.5 MG, UNKNOWN
     Route: 058
     Dates: start: 2023
  4. MOUNJARO [Suspect]
     Active Substance: TIRZEPATIDE
     Indication: Type 2 diabetes mellitus
     Dosage: 2.5 MG, UNKNOWN
     Route: 058
     Dates: start: 2023
  5. MOUNJARO [Suspect]
     Active Substance: TIRZEPATIDE
     Indication: Neuropathy peripheral
     Dosage: 7.5 MG, UNKNOWN
     Route: 058
     Dates: start: 202408
  6. MOUNJARO [Suspect]
     Active Substance: TIRZEPATIDE
     Indication: Neuropathy peripheral
     Dosage: 7.5 MG, UNKNOWN
     Route: 058
     Dates: start: 202408
  7. MOUNJARO [Suspect]
     Active Substance: TIRZEPATIDE
     Indication: Neuropathy peripheral
     Dosage: 7.5 MG, UNKNOWN
     Route: 058
     Dates: start: 202408
  8. MOUNJARO [Suspect]
     Active Substance: TIRZEPATIDE
     Indication: Neuropathy peripheral
     Dosage: 7.5 MG, UNKNOWN
     Route: 058
     Dates: start: 202408

REACTIONS (3)
  - Nephrolithiasis [Recovered/Resolved]
  - Urinary tract infection [Recovered/Resolved]
  - Kidney infection [Recovered/Resolved]
